FAERS Safety Report 12181826 (Version 2)
Quarter: 2016Q1

REPORT INFORMATION
  Report Type: Spontaneous
  Country: IT (occurrence: IT)
  Receive Date: 20160315
  Receipt Date: 20160316
  Transmission Date: 20160526
  Serious: Yes (Hospitalization)
  Sender: FDA-Public Use
  Company Number: IT-009507513-1603ITA006288

PATIENT
  Age: 47 Year
  Sex: Male

DRUGS (1)
  1. MAXALT [Suspect]
     Active Substance: RIZATRIPTAN BENZOATE
     Indication: HEADACHE
     Dosage: 1 DOSE (UNIT) AND SOMETIMES 2 DOSE (UNIT) DAILY
     Route: 048
     Dates: start: 20150101, end: 20160229

REACTIONS (2)
  - Bundle branch block right [Recovering/Resolving]
  - Drug abuse [Recovering/Resolving]

NARRATIVE: CASE EVENT DATE: 20160229
